FAERS Safety Report 12969701 (Version 1)
Quarter: 2016Q4

REPORT INFORMATION
  Report Type: Spontaneous
  Country: DE (occurrence: DE)
  Receive Date: 20161123
  Receipt Date: 20161123
  Transmission Date: 20170207
  Serious: Yes (Other)
  Sender: FDA-Public Use
  Company Number: DE-ELI_LILLY_AND_COMPANY-DE201611005207

PATIENT
  Age: 69 Year
  Sex: Female

DRUGS (3)
  1. LIPROLOG LISPRO [Suspect]
     Active Substance: INSULIN LISPRO
     Indication: DIABETES MELLITUS
     Dosage: 8 IU, BID
     Route: 058
     Dates: start: 2012
  2. LIPROLOG LISPRO [Suspect]
     Active Substance: INSULIN LISPRO
     Dosage: 4 IU, QD
     Route: 065
     Dates: start: 2012
  3. BERLINSULIN H BASAL [Suspect]
     Active Substance: INSULIN HUMAN
     Indication: DIABETES MELLITUS
     Dosage: 19 IU, QD
     Route: 058

REACTIONS (3)
  - Blood glucose increased [Unknown]
  - Wrong drug administered [Unknown]
  - Cerebrovascular accident [Unknown]

NARRATIVE: CASE EVENT DATE: 2015
